FAERS Safety Report 9534492 (Version 2)
Quarter: 2013Q3

REPORT INFORMATION
  Report Type: Spontaneous
  Country: US (occurrence: US)
  Receive Date: 20130918
  Receipt Date: 20130918
  Transmission Date: 20140515
  Serious: Yes (Other)
  Sender: FDA-Public Use
  Company Number: US-NAPPMUNDI-USA-2011-0076657

PATIENT
  Age: 51 Year
  Sex: Male
  Weight: 77 kg

DRUGS (5)
  1. BUTRANS [Suspect]
     Indication: PAIN
     Dosage: 20 MG, Q1H
     Route: 062
     Dates: start: 20110913, end: 20111010
  2. NORCO [Suspect]
     Indication: BREAKTHROUGH PAIN
  3. SOMA [Suspect]
     Indication: PRODUCT USED FOR UNKNOWN INDICATION
  4. SKELAXIN /00611501/ [Suspect]
     Indication: PRODUCT USED FOR UNKNOWN INDICATION
  5. LYRICA [Suspect]
     Indication: PRODUCT USED FOR UNKNOWN INDICATION

REACTIONS (5)
  - Convulsion [Unknown]
  - Fall [Recovered/Resolved]
  - Injury [Unknown]
  - Dizziness [Recovered/Resolved]
  - Asthenia [Recovered/Resolved]
